FAERS Safety Report 9521227 (Version 1)
Quarter: 2013Q1

REPORT INFORMATION
  Report Type: Spontaneous
  Country: US (occurrence: None)
  Receive Date: 20130305
  Receipt Date: 20130305
  Transmission Date: 20140127
  Serious: Yes (Other)
  Sender: FDA-Public Use
  Company Number: 163-21880-12010095

PATIENT
  Sex: Female

DRUGS (1)
  1. REVLIMID [Suspect]
     Indication: PLASMA CELL MYELOMA
     Route: 048
     Dates: start: 20090518

REACTIONS (7)
  - Feeling abnormal [None]
  - Drug dose omission [None]
  - Malaise [None]
  - Pain [None]
  - Fatigue [None]
  - Asthenia [None]
  - Vomiting [None]
